FAERS Safety Report 9848333 (Version 1)
Quarter: 2014Q1

REPORT INFORMATION
  Report Type: Spontaneous
  Country: GB (occurrence: GB)
  Receive Date: 20140128
  Receipt Date: 20140128
  Transmission Date: 20141002
  Serious: Yes (Life-Threatening)
  Sender: FDA-Public Use
  Company Number: GB-RANBAXY-2014R1-77346

PATIENT
  Age: 61 Year
  Sex: Female

DRUGS (5)
  1. AMOXICILLIN/CLAVULANATE [Suspect]
     Indication: SEPSIS
     Dosage: UNK
     Route: 042
     Dates: start: 20131126, end: 20131202
  2. TAZOCIN [Suspect]
     Indication: SEPSIS
     Dosage: UNK
     Route: 042
     Dates: start: 20131112, end: 20131211
  3. MEROPENEM [Concomitant]
     Indication: PRODUCT USED FOR UNKNOWN INDICATION
     Route: 065
  4. AMPHOTERICIN [Concomitant]
     Indication: PRODUCT USED FOR UNKNOWN INDICATION
     Route: 065
  5. GENTAMICIN [Concomitant]
     Indication: PRODUCT USED FOR UNKNOWN INDICATION
     Route: 065

REACTIONS (1)
  - Toxic epidermal necrolysis [Recovering/Resolving]
